FAERS Safety Report 21717840 (Version 1)
Quarter: 2022Q4

REPORT INFORMATION
  Report Type: Spontaneous
  Country: US (occurrence: US)
  Receive Date: 20221212
  Receipt Date: 20221212
  Transmission Date: 20230113
  Serious: No
  Sender: FDA-Public Use
  Company Number: US-ORGANON-O2211USA001978

PATIENT
  Sex: Female

DRUGS (15)
  1. FOLLISTIM AQ [Suspect]
     Active Substance: FOLLITROPIN
     Indication: Infertility female
     Dosage: 300 UNIT, EVERY DAY, STRENGTH: 900 UNIT/1.08 ML 2=1
     Route: 058
     Dates: start: 20220721
  2. CLOMID [Concomitant]
     Active Substance: CLOMIPHENE CITRATE
     Dosage: 50 MILLIGRAM
  3. CLOMIPHENE [Concomitant]
     Active Substance: CLOMIPHENE
  4. DOXYCYCLINE [DOXYCYCLINE HYCLATE] [Concomitant]
     Dosage: 100 MILLIGRAM
  5. DOXYCYCLINE [DOXYCYCLINE HYCLATE] [Concomitant]
     Dosage: 100 MILLIGRAM
  6. FOLIC ACID [Concomitant]
     Active Substance: FOLIC ACID
     Dosage: 800 MICROGRAM
  7. GANIRELIX ACETATE [Concomitant]
     Active Substance: GANIRELIX ACETATE
     Dosage: SOL 250/0.5 (UNIT NOT REPORTED)
  8. GANIRELIX ACETATE [Concomitant]
     Active Substance: GANIRELIX ACETATE
     Dosage: 250 MICROGRAM SYRINGE
  9. LEUPROLIDE ACETATE [Concomitant]
     Active Substance: LEUPROLIDE ACETATE
     Dosage: 1 MG/0.2
  10. LEUPROLIDE ACETATE [Concomitant]
     Active Substance: LEUPROLIDE ACETATE
     Dosage: 1 MG/0.2 ML ^MDV 1-2.8^
  11. LEVOTHYROXINE [Concomitant]
     Active Substance: LEVOTHYROXINE
     Dosage: 75 MICROGRAM
  12. PREGNYL [Concomitant]
     Active Substance: CHORIOGONADOTROPIN ALFA
     Dosage: 10000 UNIT
  13. PREGNYL [Concomitant]
     Active Substance: CHORIOGONADOTROPIN ALFA
     Dosage: 10000 UNIT ^MDV60^
  14. PRENATAL VITAMINS [ASCORBIC ACID;BIOTIN;MINERALS NOS;NICOTINIC ACID;RE [Concomitant]
  15. PROGESTERONE [Concomitant]
     Active Substance: PROGESTERONE
     Dosage: 50MG/ML ^MDV^ 10ML

REACTIONS (2)
  - Pruritus [Unknown]
  - Injection site reaction [Unknown]

NARRATIVE: CASE EVENT DATE: 20220101
